FAERS Safety Report 17103418 (Version 1)
Quarter: 2019Q4

REPORT INFORMATION
  Report Type: Spontaneous
  Country: CN (occurrence: CN)
  Receive Date: 20191203
  Receipt Date: 20191203
  Transmission Date: 20200122
  Serious: Yes (Hospitalization, Other)
  Sender: FDA-Public Use
  Company Number: CN-ROCHE-2480299

PATIENT
  Age: 66 Year
  Sex: Female

DRUGS (6)
  1. RALTITREXED [Concomitant]
     Active Substance: RALTITREXED
  2. CAPECITABINE. [Suspect]
     Active Substance: CAPECITABINE
     Indication: COLON CANCER
     Route: 048
     Dates: start: 2018, end: 201810
  3. OXALIPLATIN. [Concomitant]
     Active Substance: OXALIPLATIN
  4. IRINOTECAN [Concomitant]
     Active Substance: IRINOTECAN
  5. BEVACIZUMAB. [Suspect]
     Active Substance: BEVACIZUMAB
     Indication: COLON CANCER
     Route: 042
     Dates: start: 20190311
  6. REGORAFENIB. [Concomitant]
     Active Substance: REGORAFENIB

REACTIONS (4)
  - Autoimmune dermatitis [Recovering/Resolving]
  - Immune-mediated hepatitis [Unknown]
  - Myasthenia gravis [Recovering/Resolving]
  - Autoimmune myocarditis [Unknown]

NARRATIVE: CASE EVENT DATE: 2019
